FAERS Safety Report 14128124 (Version 4)
Quarter: 2020Q1

REPORT INFORMATION
  Report Type: Other
  Country: CA (occurrence: CA)
  Receive Date: 20171026
  Receipt Date: 20200106
  Transmission Date: 20200409
  Serious: Yes (Other)
  Sender: FDA-Public Use
  Company Number: CA-APOTEX-2017AP020227

PATIENT
  Age: 70 Year
  Sex: Female

DRUGS (4)
  1. LEFLUNOMIDE. [Suspect]
     Active Substance: LEFLUNOMIDE
     Indication: PRODUCT USED FOR UNKNOWN INDICATION
     Dosage: 20 MG, QD, (THERAPY DURATION: 730 UNIT UNSPECIFIED)
     Route: 048
  2. ENBREL [Suspect]
     Active Substance: ETANERCEPT
     Indication: RHEUMATOID ARTHRITIS
     Dosage: 50 MG, UNK (THERAPY DURATION: 731 UNIT UNSPECIFIED)
     Route: 065
  3. HUMIRA [Suspect]
     Active Substance: ADALIMUMAB
     Indication: RHEUMATOID ARTHRITIS
     Dosage: UNK
     Route: 065
  4. RITUXIMAB. [Suspect]
     Active Substance: RITUXIMAB
     Indication: PRODUCT USED FOR UNKNOWN INDICATION
     Dosage: 1000 MG, UNK (THERAPY DURATION: 731 UNIT UNSPECIFIED)
     Route: 065

REACTIONS (12)
  - Hepatic steatosis [Unknown]
  - Pneumonia [Unknown]
  - Joint swelling [Unknown]
  - Pain [Unknown]
  - Disease progression [Unknown]
  - Mobility decreased [Unknown]
  - Nausea [Unknown]
  - Blood pressure increased [Unknown]
  - Peripheral swelling [Unknown]
  - Condition aggravated [Unknown]
  - Steatohepatitis [Unknown]
  - Drug ineffective [Unknown]
